FAERS Safety Report 19706373 (Version 1)
Quarter: 2021Q3

REPORT INFORMATION
  Report Type: Spontaneous
  Country: US (occurrence: US)
  Receive Date: 20210817
  Receipt Date: 20210817
  Transmission Date: 20211014
  Serious: No
  Sender: FDA-Public Use
  Company Number: US-AUROBINDO-AUR-APL-2020-048752

PATIENT

DRUGS (2)
  1. TERBINAFINE HYDROCHLORIDE TABLETS 250MG [Suspect]
     Active Substance: TERBINAFINE HYDROCHLORIDE
     Indication: SKIN EXFOLIATION
     Dosage: UNK
     Route: 065
  2. TERBINAFINE HYDROCHLORIDE TABLETS 250MG [Suspect]
     Active Substance: TERBINAFINE HYDROCHLORIDE
     Indication: SKIN LESION

REACTIONS (2)
  - Drug ineffective [Unknown]
  - Wrong technique in product usage process [Unknown]
